FAERS Safety Report 7203799-4 (Version None)
Quarter: 2010Q4

REPORT INFORMATION
  Report Type: 
  Country: None (occurrence: None)
  Receive Date: 20101230
  Receipt Date: 20101221
  Transmission Date: 20110411
  Serious: Yes (Other)
  Sender: FDA-Public Use
  Company Number: FR-ASTRAZENECA-2010SE38033

PATIENT
  Age: 73 Year
  Sex: Male
  Weight: 69 kg

DRUGS (9)
  1. CRESTOR [Suspect]
     Indication: HYPERCHOLESTEROLAEMIA
     Route: 048
     Dates: start: 20091101, end: 20100401
  2. KARDEGIC [Concomitant]
  3. VITAMIN B-12 [Concomitant]
     Indication: PERNICIOUS ANAEMIA
  4. DOLIPRANE [Concomitant]
  5. SILYBUM MARIANUM [Concomitant]
  6. OSCILLOCOCCINUM [Concomitant]
  7. BAKOL FORT [Concomitant]
  8. ARTOTEC [Concomitant]
  9. TETRAZEPAM [Concomitant]

REACTIONS (3)
  - FATIGUE [None]
  - MYALGIA [None]
  - TENDON RUPTURE [None]
